FAERS Safety Report 22195341 (Version 1)
Quarter: 2023Q2

REPORT INFORMATION
  Report Type: Other
  Country: GB (occurrence: GB)
  Receive Date: 20230411
  Receipt Date: 20230411
  Transmission Date: 20230722
  Serious: Yes (Hospitalization)
  Sender: FDA-Public Use
  Company Number: GB-CELLTRION INC.-2018GB019409

PATIENT

DRUGS (5)
  1. RITUXIMAB [Suspect]
     Active Substance: RITUXIMAB
     Indication: Product used for unknown indication
     Dosage: 550 MG
     Route: 041
     Dates: start: 20180224, end: 20180224
  2. CYCLOPHOSPHAMIDE [Suspect]
     Active Substance: CYCLOPHOSPHAMIDE
     Indication: Product used for unknown indication
     Dosage: 1100 MG
     Route: 041
     Dates: start: 20180224, end: 20180224
  3. VINCRISTINE [Concomitant]
     Active Substance: VINCRISTINE
     Dosage: 2 MG
     Route: 041
     Dates: start: 20180224, end: 20180224
  4. DOXORUBICIN [Concomitant]
     Active Substance: DOXORUBICIN
     Dosage: 75 MG, DAILY
     Route: 041
     Dates: start: 20180224, end: 20180224
  5. PREDNISOLONE                       /00016202/ [Concomitant]
     Dosage: 100 MG
     Route: 048
     Dates: start: 20180224, end: 20180228

REACTIONS (6)
  - Hallucination, visual [Recovering/Resolving]
  - Postictal state [Recovering/Resolving]
  - Generalised tonic-clonic seizure [Recovered/Resolved]
  - Hemiparesis [Recovered/Resolved]
  - Posterior reversible encephalopathy syndrome [Recovered/Resolved]
  - Streptococcal bacteraemia [Unknown]

NARRATIVE: CASE EVENT DATE: 20180301
